FAERS Safety Report 5286308-9 (Version None)
Quarter: 2007Q2

REPORT INFORMATION
  Report Type: 
  Country: None (occurrence: None)
  Receive Date: 20070404
  Receipt Date: 20070330
  Transmission Date: 20071010
  Serious: Yes (Other)
  Sender: FDA-Public Use
  Company Number: GB-MERCK-0704GBR00005

PATIENT
  Age: 29 Year
  Sex: Male
  Weight: 75 kg

DRUGS (3)
  1. SINGULAIR [Suspect]
     Route: 048
     Dates: start: 20060908, end: 20060915
  2. ALBUTEROL [Concomitant]
  3. FLUTICASONE PROPIONATE AND SALMETEROL XINAFOATE [Concomitant]

REACTIONS (2)
  - DECREASED INTEREST [None]
  - SOMNOLENCE [None]
